FAERS Safety Report 9814612 (Version 1)
Quarter: 2014Q1

REPORT INFORMATION
  Report Type: Spontaneous
  Country: US (occurrence: US)
  Receive Date: 20140113
  Receipt Date: 20140113
  Transmission Date: 20141002
  Serious: Yes (Hospitalization)
  Sender: FDA-Public Use
  Company Number: US-B.I. PHARMACEUTICALS,INC./RIDGEFIELD-2014-BI-01187BP

PATIENT
  Sex: Female

DRUGS (7)
  1. SPIRIVA [Suspect]
     Indication: CHRONIC OBSTRUCTIVE PULMONARY DISEASE
     Dosage: 18 MCG
     Route: 048
  2. SPIRIVA [Suspect]
     Dosage: 18 MCG
     Route: 055
  3. REQUIP [Concomitant]
     Indication: PARKINSON^S DISEASE
     Route: 048
  4. REQUIP [Concomitant]
     Indication: RESTLESS LEGS SYNDROME
  5. MULTIPLE OPIOIDS [Concomitant]
     Indication: NECK PAIN
     Route: 048
  6. MULTIPLE OPIOIDS [Concomitant]
     Indication: BACK PAIN
  7. ORAL ANTI-DIABETIC MEDICATION [Concomitant]
     Indication: DIABETES MELLITUS
     Route: 048

REACTIONS (13)
  - Bladder prolapse [Not Recovered/Not Resolved]
  - Back injury [Recovered/Resolved]
  - Urinary tract infection [Not Recovered/Not Resolved]
  - Upper-airway cough syndrome [Not Recovered/Not Resolved]
  - Increased upper airway secretion [Not Recovered/Not Resolved]
  - Clostridium difficile infection [Recovered/Resolved]
  - Latent tuberculosis [Not Recovered/Not Resolved]
  - Osteoporosis [Not Recovered/Not Resolved]
  - Parkinson^s disease [Not Recovered/Not Resolved]
  - Restless legs syndrome [Not Recovered/Not Resolved]
  - Fibromyalgia [Not Recovered/Not Resolved]
  - Chronic obstructive pulmonary disease [Recovered/Resolved]
  - Incorrect route of drug administration [Recovered/Resolved]
